FAERS Safety Report 6153491-2 (Version None)
Quarter: 2009Q2

REPORT INFORMATION
  Report Type: 
  Country: None (occurrence: None)
  Receive Date: 20090413
  Receipt Date: 20090209
  Transmission Date: 20091009
  Serious: No
  Sender: FDA-Public Use
  Company Number: US-ABBOTT-09P-163-0502533-00

PATIENT
  Sex: Female
  Weight: 47.67 kg

DRUGS (2)
  1. LUPRON [Suspect]
     Indication: IN VITRO FERTILISATION
     Route: 058
     Dates: start: 20080813, end: 20080820
  2. ESTROGENIC SUBSTANCE [Concomitant]
     Indication: DRUG USE FOR UNKNOWN INDICATION
     Route: 050
     Dates: start: 20080801, end: 20080801

REACTIONS (1)
  - INSOMNIA [None]
